FAERS Safety Report 23737407 (Version 1)
Quarter: 2024Q2

REPORT INFORMATION
  Report Type: Other
  Country: US (occurrence: US)
  Receive Date: 20240412
  Receipt Date: 20240412
  Transmission Date: 20240716
  Serious: Yes (Hospitalization, Other)
  Sender: FDA-Public Use
  Company Number: US-PRESTIGE-202404-US-000938

PATIENT
  Age: 66 Year
  Sex: Male

DRUGS (1)
  1. MINERAL OIL [Suspect]
     Active Substance: MINERAL OIL
     Indication: Constipation
     Dosage: QOD
     Route: 048

REACTIONS (1)
  - Pneumonia lipoid [Recovered/Resolved]
